FAERS Safety Report 13387266 (Version 1)
Quarter: 2017Q1

REPORT INFORMATION
  Report Type: Report from Study
  Country: None (occurrence: US)
  Receive Date: 20170330
  Receipt Date: 20170330
  Transmission Date: 20170429
  Serious: Yes (Hospitalization, Other)
  Sender: FDA-Public Use
  Company Number: US-ABBVIE-17K-163-1844364-00

PATIENT
  Age: 66 Year
  Sex: Female

DRUGS (8)
  1. ASPIRIN. [Concomitant]
     Active Substance: ASPIRIN
     Indication: PRODUCT USED FOR UNKNOWN INDICATION
  2. HUMIRA [Suspect]
     Active Substance: ADALIMUMAB
     Route: 058
     Dates: start: 20151211, end: 2016
  3. JANUVIA [Concomitant]
     Active Substance: SITAGLIPTIN PHOSPHATE
     Indication: PRODUCT USED FOR UNKNOWN INDICATION
  4. HUMIRA [Suspect]
     Active Substance: ADALIMUMAB
     Indication: RHEUMATOID ARTHRITIS
     Route: 058
     Dates: start: 20140812
  5. BACLOFEN. [Concomitant]
     Active Substance: BACLOFEN
     Indication: PRODUCT USED FOR UNKNOWN INDICATION
  6. ALENDRONATE [Concomitant]
     Active Substance: ALENDRONATE SODIUM
     Indication: PRODUCT USED FOR UNKNOWN INDICATION
  7. HUMIRA [Suspect]
     Active Substance: ADALIMUMAB
     Route: 058
     Dates: start: 2017
  8. FOSAMAX [Concomitant]
     Active Substance: ALENDRONATE SODIUM
     Indication: PRODUCT USED FOR UNKNOWN INDICATION

REACTIONS (12)
  - Osteoarthritis [Not Recovered/Not Resolved]
  - Fall [Recovered/Resolved]
  - Contusion [Recovered/Resolved]
  - Escherichia urinary tract infection [Recovered/Resolved]
  - Swelling [Recovered/Resolved]
  - Pain [Recovered/Resolved]
  - Nephrolithiasis [Recovered/Resolved]
  - Fall [Recovered/Resolved]
  - Osteoporosis [Not Recovered/Not Resolved]
  - Joint instability [Recovered/Resolved]
  - Sepsis [Recovered/Resolved]
  - Lower limb fracture [Not Recovered/Not Resolved]

NARRATIVE: CASE EVENT DATE: 201609
